FAERS Safety Report 5584286-6 (Version None)
Quarter: 2008Q1

REPORT INFORMATION
  Report Type: 
  Country: None (occurrence: None)
  Receive Date: 20080108
  Receipt Date: 20080102
  Transmission Date: 20080703
  Serious: Yes (Other)
  Sender: FDA-Public Use
  Company Number: B0501548A

PATIENT
  Age: 69 Year
  Sex: Male
  Weight: 86.2 kg

DRUGS (10)
  1. AVANDIA [Suspect]
     Route: 065
     Dates: start: 20060120
  2. VIAGRA [Suspect]
     Indication: ERECTILE DYSFUNCTION
     Route: 065
  3. LEVITRA [Suspect]
     Indication: ERECTILE DYSFUNCTION
     Route: 065
  4. CIALIS [Suspect]
     Indication: ERECTILE DYSFUNCTION
     Route: 065
  5. AVANDAMET [Suspect]
     Dates: start: 20050521, end: 20071212
  6. ASPIRIN [Concomitant]
  7. ATORVASTATIN [Concomitant]
     Dates: start: 20040101
  8. GLIMEPIRIDE [Concomitant]
     Dates: start: 20040101
  9. METFORMIN HCL [Concomitant]
     Dosage: 1000MG TWICE PER DAY
     Dates: start: 20040101
  10. RAMIPRIL [Concomitant]
     Dates: start: 20040101

REACTIONS (2)
  - DRUG INEFFECTIVE [None]
  - DRUG INTERACTION [None]
